FAERS Safety Report 9353454 (Version 1)
Quarter: 2013Q2

REPORT INFORMATION
  Report Type: Report from Study
  Country: GB (occurrence: GB)
  Receive Date: 20130618
  Receipt Date: 20130618
  Transmission Date: 20140414
  Serious: Yes (Hospitalization)
  Sender: FDA-Public Use
  Company Number: GB-BAYER-2013-073825

PATIENT
  Age: 71 Year
  Sex: Male

DRUGS (22)
  1. SORAFENIB (RAF KINASE INHIBITOR) [Suspect]
     Indication: HEPATOCELLULAR CARCINOMA
     Dosage: 400 MG, BID
     Route: 048
     Dates: start: 20120423, end: 20130517
  2. TACE [Suspect]
     Indication: HEPATOCELLULAR CARCINOMA
     Dosage: 150 MG, TACE
     Route: 013
     Dates: start: 20120510, end: 20120510
  3. CORACTEN SR [Concomitant]
     Dosage: 20 MG, OM
  4. OMEPRAZOLE [Concomitant]
     Dosage: 20 MG, OM
  5. SIMVASTATIN [Concomitant]
     Dosage: 40 MG, HS
  6. THIAMINE [Concomitant]
     Dosage: 100 MG, OM
  7. VITAMIN B COMPOUND W C [Concomitant]
     Dosage: 2 DF, OM
  8. ZINC SULFATE [Concomitant]
     Dosage: 220 MG, TID
  9. METFORMIN [Concomitant]
     Dosage: 500 MG, BID
  10. RIFAXIMIN [Concomitant]
     Dosage: 550 MG, BID
  11. ASPIRIN [Concomitant]
     Dosage: 75 MG, OM
  12. PARACETAMOL [Concomitant]
     Dosage: 1 G, QID
  13. FOLIC ACID [Concomitant]
     Dosage: 5 MG, OM
  14. GLICLAZIDE [Concomitant]
     Dosage: 80 MG, OM
  15. GLYCERYL TRINITRATE [Concomitant]
     Dosage: UNK UNK, QD
  16. ASACOL [Concomitant]
     Dosage: 400 MG, TID
  17. ORAMORPH [Concomitant]
     Dosage: 10 MG, 2-4 HOURLY
  18. ZOMORPH [Concomitant]
     Dosage: 20 MG, BID
  19. LACTULOSE [Concomitant]
     Dosage: 30 MG, TID
  20. GABAPENTIN [Concomitant]
     Dosage: 100 MG, HS
  21. NICOTINE [Concomitant]
  22. CANDESARTAN [Concomitant]

REACTIONS (1)
  - Peripheral ischaemia [Recovered/Resolved with Sequelae]
